FAERS Safety Report 12715239 (Version 1)
Quarter: 2016Q3

REPORT INFORMATION
  Report Type: Spontaneous
  Country: US (occurrence: US)
  Receive Date: 20160906
  Receipt Date: 20160906
  Transmission Date: 20161109
  Serious: No
  Sender: FDA-Public Use
  Company Number: US-ACTAVIS-2016-04841

PATIENT
  Sex: Female

DRUGS (1)
  1. METOPROLOL SUCCINATE (ACTAVIS LABORATORIES FL) [Suspect]
     Active Substance: METOPROLOL SUCCINATE
     Indication: PRODUCT USED FOR UNKNOWN INDICATION
     Dosage: UNK
     Route: 065

REACTIONS (7)
  - Feeling hot [Unknown]
  - Peripheral coldness [Unknown]
  - Dry mouth [Unknown]
  - Hyperhidrosis [Unknown]
  - Fatigue [Unknown]
  - Dyspnoea [Unknown]
  - Feeling cold [Unknown]
